FAERS Safety Report 7052119-7 (Version None)
Quarter: 2010Q4

REPORT INFORMATION
  Report Type: 
  Country: None (occurrence: None)
  Receive Date: 20101018
  Receipt Date: 20101018
  Transmission Date: 20110411
  Serious: Yes (Other)
  Sender: FDA-Public Use
  Company Number: None

PATIENT
  Sex: Male
  Weight: 33.6 kg

DRUGS (1)
  1. STRATTERA [Suspect]
     Indication: ATTENTION DEFICIT/HYPERACTIVITY DISORDER
     Dosage: 1 CAPSULE ONCE A DAY PO
     Route: 048
     Dates: start: 20100925, end: 20100927

REACTIONS (6)
  - AGGRESSION [None]
  - AGITATION [None]
  - CRYING [None]
  - HALLUCINATION, VISUAL [None]
  - IMPULSIVE BEHAVIOUR [None]
  - SELF INJURIOUS BEHAVIOUR [None]
